FAERS Safety Report 23630061 (Version 1)
Quarter: 2024Q1

REPORT INFORMATION
  Report Type: Spontaneous
  Country: US (occurrence: US)
  Receive Date: 20240314
  Receipt Date: 20240314
  Transmission Date: 20240410
  Serious: Yes (Death, Other)
  Sender: FDA-Public Use
  Company Number: US-OPELLA-2024OHG007717

PATIENT
  Sex: Male

DRUGS (1)
  1. ZANTAC [Suspect]
     Active Substance: RANITIDINE HYDROCHLORIDE
     Indication: Product used for unknown indication
     Dosage: TOOK 2-3 IN A DAY
     Route: 065

REACTIONS (2)
  - Bladder cancer [Fatal]
  - Haemorrhage [Fatal]

NARRATIVE: CASE EVENT DATE: 20130101
